FAERS Safety Report 4561266-0 (Version None)
Quarter: 2005Q1

REPORT INFORMATION
  Report Type: 
  Country: None (occurrence: None)
  Receive Date: 20050126
  Receipt Date: 20041115
  Transmission Date: 20050727
  Serious: Yes (Other)
  Sender: FDA-Public Use
  Company Number: PHEH2004US12299

PATIENT
  Age: 36 Year
  Sex: Female

DRUGS (2)
  1. ALLEGRA-D - SLOW RELEASE [Concomitant]
     Indication: RHINITIS ALLERGIC
  2. ZELNORM [Suspect]
     Indication: CONSTIPATION
     Dosage: 6 MG QD - BID
     Route: 048
     Dates: start: 20040929, end: 20041111

REACTIONS (3)
  - ABDOMINAL PAIN LOWER [None]
  - DIARRHOEA [None]
  - RECTAL HAEMORRHAGE [None]
